FAERS Safety Report 8106874-5 (Version None)
Quarter: 2012Q1

REPORT INFORMATION
  Report Type: 
  Country: None (occurrence: None)
  Receive Date: 20120202
  Receipt Date: 20120125
  Transmission Date: 20120608
  Serious: Yes (Other)
  Sender: FDA-Public Use
  Company Number: US-ROXANE LABORATORIES, INC.-2012-RO-00541RO

PATIENT
  Age: 37 Year
  Sex: Female

DRUGS (1)
  1. AZATHIOPRINE [Suspect]

REACTIONS (3)
  - PORTAL HYPERTENSION [None]
  - NODULAR REGENERATIVE HYPERPLASIA [None]
  - VARICES OESOPHAGEAL [None]
